FAERS Safety Report 4899977-X (Version None)
Quarter: 2006Q1

REPORT INFORMATION
  Report Type: 
  Country: None (occurrence: None)
  Receive Date: 20060131
  Receipt Date: 20060119
  Transmission Date: 20060701
  Serious: Yes (Other)
  Sender: FDA-Public Use
  Company Number: 2006010999

PATIENT
  Age: 61 Year
  Sex: Male
  Weight: 0.206 kg

DRUGS (2)
  1. GLUCOTROL [Suspect]
     Indication: DIABETES MELLITUS
     Dosage: 5 MG (5 MG, 1 IN 1 D), ORAL
     Route: 048
     Dates: start: 20050801, end: 20050101
  2. VALSARTAN [Concomitant]

REACTIONS (3)
  - BLOOD GLUCOSE DECREASED [None]
  - DIZZINESS [None]
  - DYSPNOEA [None]
